FAERS Safety Report 16690271 (Version 1)
Quarter: 2019Q3

REPORT INFORMATION
  Report Type: Spontaneous
  Country: US (occurrence: US)
  Receive Date: 20190809
  Receipt Date: 20190809
  Transmission Date: 20191004
  Serious: No
  Sender: FDA-Public Use
  Company Number: US-ROCHE-2227874

PATIENT
  Age: 91 Year
  Sex: Female
  Weight: 62.65 kg

DRUGS (4)
  1. CELECOXIB. [Concomitant]
     Active Substance: CELECOXIB
     Route: 065
  2. LOSARTAN/HCTZ [Concomitant]
     Active Substance: HYDROCHLOROTHIAZIDE\LOSARTAN
     Indication: HYPERTENSION
     Dosage: 50/12MG
     Route: 065
  3. BONIVA [Suspect]
     Active Substance: IBANDRONATE SODIUM
     Indication: OSTEOPOROSIS
     Route: 048
     Dates: start: 201802
  4. CELECOXIB. [Concomitant]
     Active Substance: CELECOXIB
     Dosage: ONGOING: YES
     Route: 065

REACTIONS (4)
  - Carpal tunnel syndrome [Unknown]
  - Intentional product misuse [Unknown]
  - Therapy cessation [Unknown]
  - Pain [Not Recovered/Not Resolved]

NARRATIVE: CASE EVENT DATE: 20181207
